FAERS Safety Report 4387488-X (Version None)
Quarter: 2004Q2

REPORT INFORMATION
  Report Type: 
  Country: None (occurrence: None)
  Receive Date: 20040629
  Receipt Date: 20040629
  Transmission Date: 20050107
  Serious: Yes (Life-Threatening, Hospitalization)
  Sender: FDA-Public Use
  Company Number: None

PATIENT
  Age: 8 Year
  Sex: Female
  Weight: 21.3191 kg

DRUGS (3)
  1. GABITRIL [Suspect]
     Dosage: 3 MG PO
     Route: 048
     Dates: start: 20040205
  2. ADDERALL 20 [Concomitant]
  3. SEROQUEL [Concomitant]

REACTIONS (4)
  - COORDINATION ABNORMAL [None]
  - DRUG EFFECT DECREASED [None]
  - DYSPNOEA [None]
  - MENTAL STATUS CHANGES [None]
